FAERS Safety Report 25102706 (Version 1)
Quarter: 2025Q1

REPORT INFORMATION
  Report Type: Spontaneous
  Country: US (occurrence: US)
  Receive Date: 20250321
  Receipt Date: 20250321
  Transmission Date: 20250409
  Serious: Yes (Death)
  Sender: PAREXEL
  Company Number: US-COHERUS BIOSCIENCES, INC-2025-COH-US000244

PATIENT

DRUGS (2)
  1. LOQTORZI [Suspect]
     Active Substance: TORIPALIMAB-TPZI
     Indication: Breast cancer
     Dates: start: 20250128
  2. FENTANYL [Concomitant]
     Active Substance: FENTANYL
     Route: 041

REACTIONS (1)
  - Breast cancer metastatic [Fatal]
